FAERS Safety Report 7723732-6 (Version None)
Quarter: 2011Q3

REPORT INFORMATION
  Report Type: 
  Country: None (occurrence: None)
  Receive Date: 20110901
  Receipt Date: 20110825
  Transmission Date: 20111222
  Serious: Yes (Other)
  Sender: FDA-Public Use
  Company Number: GB-TEVA-298647ISR

PATIENT
  Age: 61 Year
  Sex: Female

DRUGS (1)
  1. MIRTAZAPINE [Suspect]
     Indication: PANIC ATTACK
     Dates: start: 20080601, end: 20090801

REACTIONS (3)
  - TREMOR [None]
  - PARKINSON'S DISEASE [None]
  - HYPERTONIA [None]
